FAERS Safety Report 16225061 (Version 4)
Quarter: 2023Q1

REPORT INFORMATION
  Report Type: Spontaneous
  Country: US (occurrence: US)
  Receive Date: 20190422
  Receipt Date: 20230123
  Transmission Date: 20230418
  Serious: No
  Sender: FDA-Public Use
  Company Number: US-BIOGEN-2019BI00727582

PATIENT
  Age: 60 Year
  Sex: Female

DRUGS (1)
  1. PLEGRIDY [Suspect]
     Active Substance: PEGINTERFERON BETA-1A
     Indication: Multiple sclerosis
     Route: 050
     Dates: start: 20190109

REACTIONS (8)
  - Skin infection [Not Recovered/Not Resolved]
  - Gait disturbance [Unknown]
  - Candida infection [Unknown]
  - Eczema [Not Recovered/Not Resolved]
  - Injection site bruising [Unknown]
  - Influenza like illness [Not Recovered/Not Resolved]
  - Injection site discolouration [Unknown]
  - Depression [Unknown]

NARRATIVE: CASE EVENT DATE: 20190101
